FAERS Safety Report 14803737 (Version 1)
Quarter: 2018Q2

REPORT INFORMATION
  Report Type: Spontaneous
  Country: US (occurrence: US)
  Receive Date: 20180425
  Receipt Date: 20180425
  Transmission Date: 20180711
  Serious: No
  Sender: FDA-Public Use
  Company Number: US-TRIS PHARMA, INC-2018TRISPO00295

PATIENT

DRUGS (3)
  1. DYANAVEL XR [Suspect]
     Active Substance: AMPHETAMINE
     Dosage: 2 ML
     Route: 048
  2. DYANAVEL XR [Suspect]
     Active Substance: AMPHETAMINE
     Dosage: 1 ML
     Route: 048
     Dates: end: 201712
  3. DYANAVEL XR [Suspect]
     Active Substance: AMPHETAMINE
     Indication: ATTENTION DEFICIT/HYPERACTIVITY DISORDER
     Dosage: 1 ML
     Route: 048
     Dates: start: 201709

REACTIONS (3)
  - Aggression [Recovered/Resolved]
  - Abnormal behaviour [Recovered/Resolved]
  - Mood altered [Recovered/Resolved]
